FAERS Safety Report 21375261 (Version 1)
Quarter: 2022Q3

REPORT INFORMATION
  Report Type: Spontaneous
  Country: US (occurrence: US)
  Receive Date: 20220926
  Receipt Date: 20220926
  Transmission Date: 20221027
  Serious: Yes (Other)
  Sender: FDA-Public Use
  Company Number: US-BAYER-2022A129618

PATIENT
  Sex: Female

DRUGS (4)
  1. ADEMPAS [Suspect]
     Active Substance: RIOCIGUAT
     Indication: Product used for unknown indication
     Dosage: 0.5 MG
  2. ADEMPAS [Suspect]
     Active Substance: RIOCIGUAT
     Indication: Product used for unknown indication
     Dosage: 2.5 MG
  3. OPSUMIT [Suspect]
     Active Substance: MACITENTAN
     Indication: Pulmonary hypertension
     Dosage: UNK
     Route: 048
     Dates: start: 20211017
  4. OXYGEN [Concomitant]
     Active Substance: OXYGEN

REACTIONS (18)
  - Renal failure [None]
  - Renal impairment [None]
  - Cardiac failure [None]
  - Neuropathy peripheral [None]
  - Anaemia [None]
  - Rectal haemorrhage [None]
  - Fluid retention [None]
  - Dyspnoea [None]
  - Memory impairment [None]
  - Weight decreased [None]
  - COVID-19 [None]
  - Haemoglobin decreased [None]
  - Blood potassium decreased [None]
  - Nasal congestion [None]
  - Oropharyngeal pain [None]
  - Dysphonia [None]
  - Fatigue [None]
  - Ageusia [None]
